FAERS Safety Report 11196101 (Version 2)
Quarter: 2015Q2

REPORT INFORMATION
  Report Type: Spontaneous
  Country: AU (occurrence: AU)
  Receive Date: 20150617
  Receipt Date: 20150622
  Transmission Date: 20150821
  Serious: Yes (Other)
  Sender: FDA-Public Use
  Company Number: AU-PFIZER INC-2015198147

PATIENT
  Sex: Female
  Weight: .5 kg

DRUGS (2)
  1. SILDENAFIL CITRATE. [Suspect]
     Active Substance: SILDENAFIL CITRATE
     Indication: PATENT DUCTUS ARTERIOSUS
     Dosage: 0.5 MG/KG, 4X/DAY
     Route: 048
  2. SILDENAFIL CITRATE. [Suspect]
     Active Substance: SILDENAFIL CITRATE
     Indication: PULMONARY HYPERTENSION

REACTIONS (3)
  - Drug administered to patient of inappropriate age [Unknown]
  - Prerenal failure [Recovering/Resolving]
  - Hypotension [Recovering/Resolving]
